FAERS Safety Report 6031371-0 (Version None)
Quarter: 2009Q1

REPORT INFORMATION
  Report Type: 
  Country: None (occurrence: None)
  Receive Date: 20090108
  Receipt Date: 20081229
  Transmission Date: 20090719
  Serious: Yes (Other)
  Sender: FDA-Public Use
  Company Number: GB-ABBOTT-08P-167-0492094-00

PATIENT
  Sex: Female
  Weight: 65 kg

DRUGS (6)
  1. HUMIRA [Suspect]
     Indication: RHEUMATOID ARTHRITIS
     Dates: start: 20080709, end: 20081030
  2. SULFASALAZINE [Concomitant]
     Indication: RHEUMATOID ARTHRITIS
     Dosage: LONGSTANDING
     Route: 048
  3. MELOXICAM [Concomitant]
     Indication: RHEUMATOID ARTHRITIS
     Dosage: LONGSTANDING
     Route: 048
  4. AMITRIPTYLINE HCL [Concomitant]
     Indication: DEPRESSION
     Dosage: NOCTE LONGSTANDING
  5. FOLIC ACID [Concomitant]
     Indication: DRUG USE FOR UNKNOWN INDICATION
     Route: 048
  6. TOLTERODINE [Concomitant]
     Indication: HYPERTONIC BLADDER
     Route: 048

REACTIONS (5)
  - ERYTHEMA [None]
  - HEADACHE [None]
  - HYPERHIDROSIS [None]
  - NAUSEA [None]
  - SWELLING FACE [None]
